FAERS Safety Report 15098500 (Version 3)
Quarter: 2019Q3

REPORT INFORMATION
  Report Type: Report from Study
  Country: DE (occurrence: DE)
  Receive Date: 20180702
  Receipt Date: 20190827
  Transmission Date: 20191004
  Serious: Yes (Disabling, Other)
  Sender: FDA-Public Use
  Company Number: DE-SA-2016SA205619

PATIENT
  Age: 53 Year
  Sex: Male

DRUGS (2)
  1. ALEMTUZUMAB [Suspect]
     Active Substance: ALEMTUZUMAB
     Dosage: 12 MG,QD
     Route: 041
     Dates: start: 20151005, end: 20151009
  2. ALEMTUZUMAB [Suspect]
     Active Substance: ALEMTUZUMAB
     Indication: MULTIPLE SCLEROSIS
     Dosage: 12 MG,QD
     Route: 041
     Dates: start: 20161011, end: 20161013

REACTIONS (17)
  - Breath odour [Recovered/Resolved]
  - Pain [Unknown]
  - Hypersensitivity [Recovered/Resolved]
  - Rash macular [Recovered/Resolved]
  - Condition aggravated [Unknown]
  - Multiple sclerosis [Unknown]
  - Drug ineffective [Unknown]
  - Asthenia [Unknown]
  - Fungal infection [Recovered/Resolved]
  - Spinal X-ray abnormal [Not Recovered/Not Resolved]
  - Rash pustular [Recovered/Resolved]
  - Discomfort [Unknown]
  - Balance disorder [Not Recovered/Not Resolved]
  - Sensory disturbance [Unknown]
  - Mobility decreased [Unknown]
  - Stress [Unknown]
  - Memory impairment [Recovering/Resolving]

NARRATIVE: CASE EVENT DATE: 2016
